FAERS Safety Report 13353883 (Version 1)
Quarter: 2017Q1

REPORT INFORMATION
  Report Type: Spontaneous
  Country: US (occurrence: US)
  Receive Date: 20170320
  Receipt Date: 20170320
  Transmission Date: 20170429
  Serious: Yes (Other)
  Sender: FDA-Public Use
  Company Number: None

PATIENT
  Age: 68 Year
  Sex: Female
  Weight: 80.55 kg

DRUGS (11)
  1. NORCO [Concomitant]
     Active Substance: ACETAMINOPHEN\HYDROCODONE BITARTRATE
  2. CELECOXHIB [Suspect]
     Active Substance: CELECOXIB
     Indication: ARTHRITIS
     Dosage: ?          QUANTITY:1 CAPSULE(S);?
     Route: 048
     Dates: start: 20160714, end: 20160729
  3. CELECOXHIB [Suspect]
     Active Substance: CELECOXIB
     Indication: NEUROPATHY PERIPHERAL
     Dosage: ?          QUANTITY:1 CAPSULE(S);?
     Route: 048
     Dates: start: 20160714, end: 20160729
  4. ATENOLOL. [Concomitant]
     Active Substance: ATENOLOL
  5. PRISTIQ EXTENDED-RELEASE [Concomitant]
     Active Substance: DESVENLAFAXINE SUCCINATE
  6. SOMA [Concomitant]
     Active Substance: CARISOPRODOL
  7. CELECOXHIB [Suspect]
     Active Substance: CELECOXIB
     Indication: ROTATOR CUFF SYNDROME
     Dosage: ?          QUANTITY:1 CAPSULE(S);?
     Route: 048
     Dates: start: 20160714, end: 20160729
  8. CELECOXHIB [Suspect]
     Active Substance: CELECOXIB
     Indication: FIBROMYALGIA
     Dosage: ?          QUANTITY:1 CAPSULE(S);?
     Route: 048
     Dates: start: 20160714, end: 20160729
  9. AMLODIPINE [Concomitant]
     Active Substance: AMLODIPINE BESYLATE
  10. LISINOPRIL. [Concomitant]
     Active Substance: LISINOPRIL
  11. NEURONTIN [Concomitant]
     Active Substance: GABAPENTIN

REACTIONS (2)
  - Drug ineffective [None]
  - Product substitution issue [None]

NARRATIVE: CASE EVENT DATE: 20160714
